FAERS Safety Report 12990619 (Version 1)
Quarter: 2016Q4

REPORT INFORMATION
  Report Type: Spontaneous
  Country: TW (occurrence: TW)
  Receive Date: 20161201
  Receipt Date: 20161201
  Transmission Date: 20170207
  Serious: Yes (Other)
  Sender: FDA-Public Use
  Company Number: TW-MYLANLABS-2016M1051973

PATIENT

DRUGS (1)
  1. DANTROLENE [Suspect]
     Active Substance: DANTROLENE
     Indication: NEUROLEPTIC MALIGNANT SYNDROME
     Dosage: (}= 1 MG/KG VIA RAPID IV INJECTION AND WAS REPEATED IF NECESSARY UPTO DOSE OF 10 MG/KG)
     Route: 042

REACTIONS (1)
  - Embolism venous [Recovering/Resolving]
